FAERS Safety Report 15599257 (Version 10)
Quarter: 2020Q3

REPORT INFORMATION
  Report Type: Report from Study
  Country: US (occurrence: US)
  Receive Date: 20181108
  Receipt Date: 20200807
  Transmission Date: 20201102
  Serious: No
  Sender: FDA-Public Use
  Company Number: PHEH2018US046591

PATIENT
  Sex: Male

DRUGS (6)
  1. AFINITOR [Suspect]
     Active Substance: EVEROLIMUS
     Dosage: 15 MG, QW
     Route: 048
     Dates: start: 20180917
  2. AFINITOR [Suspect]
     Active Substance: EVEROLIMUS
     Dosage: 10 MG, TWICE WEEKLY
     Route: 048
     Dates: start: 20181031
  3. AFINITOR [Suspect]
     Active Substance: EVEROLIMUS
     Dosage: 10 MG (2 TIMES WEEKLY)
     Route: 048
     Dates: start: 20181217
  4. AFINITOR [Suspect]
     Active Substance: EVEROLIMUS
     Indication: ACUTE MYELOID LEUKAEMIA
     Dosage: 10 MG, TWICE WEEKLY
     Route: 048
     Dates: start: 20180809
  5. AFINITOR [Suspect]
     Active Substance: EVEROLIMUS
     Dosage: 15 MG, QW
     Route: 048
     Dates: start: 20181031
  6. AFINITOR [Suspect]
     Active Substance: EVEROLIMUS
     Dosage: 5 MG, QD
     Route: 048
     Dates: start: 20181031

REACTIONS (26)
  - Lip ulceration [Not Recovered/Not Resolved]
  - Restlessness [Not Recovered/Not Resolved]
  - Gingival discolouration [Recovering/Resolving]
  - Gingival swelling [Recovering/Resolving]
  - Folliculitis [Not Recovered/Not Resolved]
  - Abdominal pain upper [Not Recovered/Not Resolved]
  - Inappropriate schedule of product administration [Unknown]
  - Subcutaneous abscess [Not Recovered/Not Resolved]
  - Skin haemorrhage [Not Recovered/Not Resolved]
  - Stomatitis [Recovering/Resolving]
  - Gastroenteritis viral [Recovering/Resolving]
  - Nausea [Not Recovered/Not Resolved]
  - Lip swelling [Recovered/Resolved]
  - Moaning [Not Recovered/Not Resolved]
  - Headache [Not Recovered/Not Resolved]
  - Visual impairment [Not Recovered/Not Resolved]
  - Dysarthria [Not Recovered/Not Resolved]
  - Urticaria [Recovered/Resolved]
  - Loose tooth [Recovering/Resolving]
  - Behaviour disorder [Not Recovered/Not Resolved]
  - Skin plaque [Not Recovered/Not Resolved]
  - Oral pain [Not Recovered/Not Resolved]
  - Folliculitis [Recovered/Resolved]
  - Oral pustule [Recovering/Resolving]
  - Oral pain [Recovering/Resolving]
  - Migraine [Not Recovered/Not Resolved]
